FAERS Safety Report 9787780 (Version 1)
Quarter: 2013Q4

REPORT INFORMATION
  Report Type: Spontaneous
  Country: US (occurrence: US)
  Receive Date: 20131230
  Receipt Date: 20131230
  Transmission Date: 20140711
  Serious: No
  Sender: FDA-Public Use
  Company Number: US-PFIZER INC-2013367770

PATIENT
  Age: 77 Year
  Sex: Male

DRUGS (1)
  1. SUTENT [Suspect]
     Dosage: 2 WEEKS ON/1 WEEK OFF
     Route: 048

REACTIONS (9)
  - Gastric disorder [Unknown]
  - Eructation [Unknown]
  - Diarrhoea [Unknown]
  - Fatigue [Unknown]
  - Constipation [Unknown]
  - Dyspepsia [Unknown]
  - Skin exfoliation [Unknown]
  - Ageusia [Unknown]
  - Decreased appetite [Unknown]
